FAERS Safety Report 13172546 (Version 1)
Quarter: 2017Q1

REPORT INFORMATION
  Report Type: Spontaneous
  Country: US (occurrence: US)
  Receive Date: 20170201
  Receipt Date: 20170201
  Transmission Date: 20170428
  Serious: No
  Sender: FDA-Public Use
  Company Number: US-GLAXOSMITHKLINE-US2017009711

PATIENT
  Age: 68 Year
  Sex: Female

DRUGS (1)
  1. ALLI [Suspect]
     Active Substance: ORLISTAT
     Indication: WEIGHT CONTROL
     Dosage: UNK
     Route: 048
     Dates: start: 201701

REACTIONS (3)
  - Diarrhoea [Recovering/Resolving]
  - Product use issue [Unknown]
  - Circumstance or information capable of leading to medication error [Unknown]
